FAERS Safety Report 6463856-7 (Version None)
Quarter: 2009Q4

REPORT INFORMATION
  Report Type: 
  Country: None (occurrence: None)
  Receive Date: 20091201
  Receipt Date: 20091123
  Transmission Date: 20100525
  Serious: Yes (Hospitalization, Other)
  Sender: FDA-Public Use
  Company Number: US-ROCHE-662374

PATIENT
  Sex: Female
  Weight: 106.4 kg

DRUGS (5)
  1. PEG-INTERFERON A-2A (RO 25-8310) [Suspect]
     Indication: HEPATITIS C
     Dosage: FORM: PRE-FILLED SYRINGE
     Route: 058
     Dates: start: 20090811, end: 20091022
  2. RIBAVIRIN [Suspect]
     Indication: HEPATITIS C
     Dosage: DIVIDED DOSES
     Route: 048
     Dates: start: 20090811, end: 20091022
  3. ZOLOFT [Concomitant]
  4. KLONOPIN [Concomitant]
  5. GEODON [Concomitant]
     Dosage: DRUG REPORTED: GEODAN

REACTIONS (9)
  - ANAEMIA [None]
  - BLOOD GLUCOSE INCREASED [None]
  - DYSPNOEA [None]
  - INJECTION SITE RASH [None]
  - LOSS OF CONSCIOUSNESS [None]
  - SKIN MASS [None]
  - THROMBOSIS [None]
  - VERTIGO [None]
  - WHITE BLOOD CELL COUNT DECREASED [None]
